FAERS Safety Report 13678317 (Version 1)
Quarter: 2017Q2

REPORT INFORMATION
  Report Type: Spontaneous
  Country: US (occurrence: US)
  Receive Date: 20170621
  Receipt Date: 20170621
  Transmission Date: 20170830
  Serious: Yes (Other)
  Sender: FDA-Public Use
  Company Number: None

PATIENT
  Age: 49 Year
  Sex: Male
  Weight: 82 kg

DRUGS (17)
  1. NACL [Concomitant]
     Active Substance: SODIUM CHLORIDE
  2. DIPHENHYDRAMINE. [Concomitant]
     Active Substance: DIPHENHYDRAMINE
  3. GABAPENTIN. [Concomitant]
     Active Substance: GABAPENTIN
  4. FLONASE NASAL [Concomitant]
  5. VITAMIN D [Concomitant]
     Active Substance: CHOLECALCIFEROL
  6. TRAZODONE [Concomitant]
     Active Substance: TRAZODONE HYDROCHLORIDE
  7. GAMMAPLEX [Suspect]
     Active Substance: HUMAN IMMUNOGLOBULIN G
     Indication: IMMUNODEFICIENCY
     Dosage: 35 GRAMS EVERY 28 DAYS INTRAVENOUS DRIP?
     Route: 041
     Dates: start: 20161130, end: 20170424
  8. ACETAMINOPHEN. [Concomitant]
     Active Substance: ACETAMINOPHEN
  9. PRILOSEC [Concomitant]
     Active Substance: OMEPRAZOLE MAGNESIUM
  10. ZANTAC [Concomitant]
     Active Substance: RANITIDINE HYDROCHLORIDE
  11. VITAMIN B COMPLEX [Concomitant]
     Active Substance: CYANOCOBALAMIN\DEXPANTHENOL\NIACINAMIDE\PYRIDOXINE HYDROCHLORIDE\RIBOFLAVIN 5^-PHOSPHATE SODIUM\THIAMINE HYDROCHLORIDE\VITAMIN B COMPLEX
  12. LIPITOR [Concomitant]
     Active Substance: ATORVASTATIN CALCIUM
  13. COENZYME Q10 [Concomitant]
     Active Substance: UBIDECARENONE
  14. MIRTAZAPINE. [Concomitant]
     Active Substance: MIRTAZAPINE
  15. LORATIDINE [Concomitant]
     Active Substance: LORATADINE
  16. NIACIN ER [Concomitant]
     Active Substance: NIACIN
  17. FISH OIL [Concomitant]
     Active Substance: FISH OIL

REACTIONS (1)
  - Deep vein thrombosis [None]

NARRATIVE: CASE EVENT DATE: 20170510
